FAERS Safety Report 17857155 (Version 2)
Quarter: 2020Q2

REPORT INFORMATION
  Report Type: Not Available
  Country: US (occurrence: US)
  Receive Date: 20200603
  Receipt Date: 20200616
  Transmission Date: 20200714
  Serious: No
  Sender: FDA-Public Use
  Company Number: US-NEUROCRINE BIOSCIENCES INC.-2020NBI01713

PATIENT
  Age: 75 Year
  Sex: Female

DRUGS (19)
  1. MODAFINIL. [Concomitant]
     Active Substance: MODAFINIL
     Dosage: IN MORNING
  2. OMEPRAZOLE. [Concomitant]
     Active Substance: OMEPRAZOLE
     Indication: REGURGITATION
     Dosage: IN MORNING
  3. LAMOTRIGINE. [Concomitant]
     Active Substance: LAMOTRIGINE
     Dosage: IN MORNING
  4. TYLENOL [Concomitant]
     Active Substance: ACETAMINOPHEN
  5. INGREZZA [Suspect]
     Active Substance: VALBENAZINE
     Indication: TARDIVE DYSKINESIA
     Route: 048
     Dates: start: 20200417, end: 202005
  6. ETOPOSIDE VP 16 [Concomitant]
     Indication: SMALL CELL LUNG CANCER
     Dosage: CHEMOTHERAPEUTIC AGENT - DAYS 1,2,3 OF CHEMOTHERAPY CYCLE FOR 4 CYCLES
  7. CARBOPLATIN. [Concomitant]
     Active Substance: CARBOPLATIN
     Indication: SMALL CELL LUNG CANCER
     Dosage: CHEMOTHERAPEUTIC AGENT - DAY 1 OF CHEMOTHERAPY CYCLE FOR 4 CYCLES
  8. RADIATION [Concomitant]
     Active Substance: RADIATION THERAPY
     Indication: SMALL CELL LUNG CANCER
  9. TIZANIDINE. [Concomitant]
     Active Substance: TIZANIDINE
     Indication: MUSCLE RELAXANT THERAPY
     Dosage: AT NIGHT
  10. DILTIAZEM HCL [Concomitant]
     Active Substance: DILTIAZEM HYDROCHLORIDE
     Indication: HYPERTENSION
     Dosage: IN MORNING
  11. PROAIR HFA [Concomitant]
     Active Substance: ALBUTEROL SULFATE
     Indication: CHRONIC OBSTRUCTIVE PULMONARY DISEASE
     Dosage: AS NEEDED
  12. PRAMIPEXOLE. [Concomitant]
     Active Substance: PRAMIPEXOLE
     Indication: RESTLESS LEGS SYNDROME
     Dosage: AT NIGHT
  13. QUETIAPINE FUMARATE. [Concomitant]
     Active Substance: QUETIAPINE FUMARATE
     Indication: INSOMNIA
     Dosage: AT BEDTIME
  14. LORAZEPAM. [Concomitant]
     Active Substance: LORAZEPAM
     Indication: ANXIETY
  15. ADVAIR HFA [Concomitant]
     Active Substance: FLUTICASONE PROPIONATE\SALMETEROL XINAFOATE
     Indication: CHRONIC OBSTRUCTIVE PULMONARY DISEASE
  16. SUDAFED [Concomitant]
     Active Substance: PSEUDOEPHEDRINE HYDROCHLORIDE
     Dosage: IN THE MORNING, USE IF NOT ABLE TO BREATH
  17. VITAMIN D3 [Concomitant]
     Active Substance: CHOLECALCIFEROL
     Dosage: IN MORNING
  18. MELATONIN [Concomitant]
     Active Substance: MELATONIN
     Indication: INSOMNIA
     Dosage: AT NIGHT
  19. APPLE CIDER [Concomitant]
     Dosage: IN THE MORNING

REACTIONS (2)
  - Vision blurred [Recovering/Resolving]
  - Balance disorder [Recovering/Resolving]

NARRATIVE: CASE EVENT DATE: 20200417
